FAERS Safety Report 5375421-3 (Version None)
Quarter: 2007Q2

REPORT INFORMATION
  Report Type: 
  Country: None (occurrence: None)
  Receive Date: 20070627
  Receipt Date: 20070614
  Transmission Date: 20071010
  Serious: Yes (Life-Threatening, Hospitalization, Other)
  Sender: FDA-Public Use
  Company Number: 07062153

PATIENT
  Age: 37 Year
  Sex: Female

DRUGS (1)
  1. EMLA [Suspect]
     Indication: ANAESTHESIA
     Dosage: TOPICAL
     Route: 061

REACTIONS (6)
  - ARRHYTHMIA [None]
  - CIRCULATORY COLLAPSE [None]
  - CYANOSIS [None]
  - METHAEMOGLOBINAEMIA [None]
  - PARAESTHESIA ORAL [None]
  - TINNITUS [None]
